FAERS Safety Report 9084432 (Version 1)
Quarter: 2013Q1

REPORT INFORMATION
  Report Type: Spontaneous
  Country: US (occurrence: US)
  Receive Date: 20130131
  Receipt Date: 20130131
  Transmission Date: 20140127
  Serious: No
  Sender: FDA-Public Use
  Company Number: US-PFIZER INC-2013037657

PATIENT
  Age: 57 Year
  Sex: Female
  Weight: 68.03 kg

DRUGS (6)
  1. LYRICA [Suspect]
     Dosage: UNK
     Route: 048
  2. NEURONTIN [Suspect]
     Indication: RHEUMATOID ARTHRITIS
     Dosage: UNK
     Dates: start: 2010
  3. ERYTHROMYCIN [Suspect]
     Indication: INFECTION
     Dosage: UNK
  4. BIAXIN [Suspect]
     Indication: INFECTION
     Dosage: UNK
  5. OXYCONTIN [Concomitant]
     Indication: PAIN
     Dosage: UNK, 2X/DAY
  6. NORCO [Concomitant]
     Indication: PAIN
     Dosage: UNK, AS NEEDED

REACTIONS (4)
  - Nausea [Unknown]
  - Abdominal pain upper [Unknown]
  - Body height decreased [Unknown]
  - Gastrointestinal disorder [Unknown]
